FAERS Safety Report 10916087 (Version 1)
Quarter: 2015Q1

REPORT INFORMATION
  Report Type: Spontaneous
  Country: US (occurrence: None)
  Receive Date: 20150311
  Receipt Date: 20150311
  Transmission Date: 20150721
  Serious: No
  Sender: FDA-Public Use
  Company Number: None

PATIENT
  Age: 77 Year
  Sex: Female
  Weight: 56.7 kg

DRUGS (9)
  1. CALCIIUM [Concomitant]
  2. ASPIRIN. [Concomitant]
     Active Substance: ASPIRIN
  3. FENOFIBRATE. [Concomitant]
     Active Substance: FENOFIBRATE
  4. MULTIVITAMIN [Concomitant]
     Active Substance: VITAMINS
  5. TRAZODONE [Suspect]
     Active Substance: TRAZODONE HYDROCHLORIDE
     Indication: INSOMNIA
     Dosage: ONCE BEFORE BEDTIME, BY MOUITH
     Dates: start: 20150122, end: 20150124
  6. SYMVASTATIN [Concomitant]
  7. VITAMIN D3 [Concomitant]
     Active Substance: CHOLECALCIFEROL
  8. HYDROCHLOROTHIAZIDE. [Concomitant]
     Active Substance: HYDROCHLOROTHIAZIDE
  9. LOSARTAN [Concomitant]
     Active Substance: LOSARTAN

REACTIONS (6)
  - Nausea [None]
  - Hyperhidrosis [None]
  - Feeling abnormal [None]
  - Vertigo [None]
  - Vomiting [None]
  - Dizziness [None]
